FAERS Safety Report 4336051-5 (Version None)
Quarter: 2004Q2

REPORT INFORMATION
  Report Type: 
  Country: None (occurrence: None)
  Receive Date: 20040406
  Receipt Date: 20040323
  Transmission Date: 20050107
  Serious: Yes (Hospitalization, Other)
  Sender: FDA-Public Use
  Company Number: 236076

PATIENT
  Age: 20 Year
  Sex: Male
  Weight: 78.7 kg

DRUGS (4)
  1. NORDITROPIN SIMPLEXX 5MG (NORDITROPIN SIMPLEXX) 5 MG (SOMATROPIN) INJ. [Suspect]
     Indication: GROWTH HORMONE DEFICIENCY
     Dosage: 1 MG, QD
     Dates: start: 20020527, end: 20040318
  2. HYDROCORTISONE [Concomitant]
  3. MINIRIN ^FERRING^ (DESMOPRESSIN ACETATE) [Concomitant]
  4. TESTOSTERON - SLOW RELEASE (TESTOSTERONE ENANTATE) [Concomitant]

REACTIONS (1)
  - PITUITARY-DEPENDENT CUSHING'S SYNDROME [None]
